FAERS Safety Report 19920419 (Version 4)
Quarter: 2022Q1

REPORT INFORMATION
  Report Type: Report from Study
  Country: US (occurrence: US)
  Receive Date: 20211006
  Receipt Date: 20220119
  Transmission Date: 20220424
  Serious: No
  Sender: FDA-Public Use
  Company Number: NVSC2021US227787

PATIENT
  Age: 62 Year
  Sex: Female

DRUGS (2)
  1. GLATOPA [Suspect]
     Active Substance: GLATIRAMER ACETATE
     Indication: Multiple sclerosis
     Dosage: 40 MG (BENEATH THE SKIN, USUALLY VIA INJECTION), TIW
     Route: 058
     Dates: start: 20210929
  2. GLATOPA [Suspect]
     Active Substance: GLATIRAMER ACETATE
     Dosage: 40 MG (BENEATH THE SKIN, USUALLY VIA INJECTION), TIW
     Route: 058
     Dates: start: 20211006

REACTIONS (4)
  - Injection site pain [Unknown]
  - Urticaria [Unknown]
  - Chills [Unknown]
  - Vomiting [Unknown]

NARRATIVE: CASE EVENT DATE: 20211006
